FAERS Safety Report 10237066 (Version 2)
Quarter: 2014Q3

REPORT INFORMATION
  Report Type: Spontaneous
  Country: US (occurrence: US)
  Receive Date: 20140613
  Receipt Date: 20140730
  Transmission Date: 20150326
  Serious: No
  Sender: FDA-Public Use
  Company Number: US-TEVA-486953USA

PATIENT
  Age: 69 Year
  Sex: Male
  Weight: 102.15 kg

DRUGS (4)
  1. CHOLESTEROL MEDICATIONS [Concomitant]
     Active Substance: UNSPECIFIED INGREDIENT
     Indication: BLOOD CHOLESTEROL ABNORMAL
  2. QNASL [Suspect]
     Active Substance: BECLOMETHASONE DIPROPIONATE
     Indication: HYPERSENSITIVITY
     Dosage: 80 MICROGRAM DAILY; 2 SPRAYS EACH NOSTRIL
     Dates: start: 20140601
  3. QNASL [Suspect]
     Active Substance: BECLOMETHASONE DIPROPIONATE
     Indication: SINUSITIS
  4. BLOOD PRESSURE MEDICATIONS [Concomitant]
     Active Substance: UNSPECIFIED INGREDIENT
     Indication: BLOOD CHOLESTEROL ABNORMAL

REACTIONS (7)
  - Headache [Recovered/Resolved]
  - Nausea [Recovered/Resolved]
  - Sinus congestion [Not Recovered/Not Resolved]
  - Pollakiuria [Recovered/Resolved]
  - Dizziness [Recovered/Resolved]
  - Paranasal sinus discomfort [Not Recovered/Not Resolved]
  - Drug ineffective [Not Recovered/Not Resolved]

NARRATIVE: CASE EVENT DATE: 20140601
